FAERS Safety Report 18269566 (Version 3)
Quarter: 2022Q4

REPORT INFORMATION
  Report Type: Spontaneous
  Country: GB (occurrence: GB)
  Receive Date: 20200915
  Receipt Date: 20221219
  Transmission Date: 20230113
  Serious: Yes (Other)
  Sender: FDA-Public Use
  Company Number: GB-BAXTER-2020BAX017656

PATIENT
  Age: 36 Year
  Sex: Female
  Weight: 89 kg

DRUGS (12)
  1. CISPLATIN [Suspect]
     Active Substance: CISPLATIN
     Indication: Germ cell neoplasm
     Dosage: IN SODIUM CHLORIDE 0.9%, PRN
     Dates: start: 20200824, end: 20200824
  2. DALTEPARIN SODIUM [Suspect]
     Active Substance: DALTEPARIN SODIUM
     Dosage: 18000 IU, 1X/DAY
     Route: 065
     Dates: start: 20200824
  3. DEXAMETHASONE SODIUM PHOSPHATE [Suspect]
     Active Substance: DEXAMETHASONE SODIUM PHOSPHATE
     Indication: Supportive care
     Dosage: 8 MG, DAILY (BD FOR 3 DAYS)
     Route: 065
     Dates: start: 20200824, end: 20200826
  4. BACTERIOSTATIC SODIUM CHLORIDE [Suspect]
     Active Substance: SODIUM CHLORIDE
     Indication: Medication dilution
     Dosage: 2 DF, QD, (IN ETOPOSIDE) (FORMULATION: INTRAVENOUS INFUSION BP)
     Route: 042
     Dates: start: 20200824, end: 20200824
  5. BACTERIOSTATIC SODIUM CHLORIDE [Suspect]
     Active Substance: SODIUM CHLORIDE
     Dosage: UNK, IN CISPLATIN
     Route: 042
     Dates: start: 20200824, end: 20200824
  6. APREPITANT [Suspect]
     Active Substance: APREPITANT
     Indication: Supportive care
     Dosage: 80 MG (D2), PRN
     Route: 065
     Dates: start: 20200825
  7. APREPITANT [Suspect]
     Active Substance: APREPITANT
     Dosage: 125 MG (D1), PRN
     Dates: start: 20200824
  8. APREPITANT [Suspect]
     Active Substance: APREPITANT
     Dosage: 80 MG (D3), PRN
     Route: 065
     Dates: start: 20200826, end: 20200826
  9. DOMPERIDONE [Suspect]
     Active Substance: DOMPERIDONE
     Indication: Supportive care
     Dosage: 30 MG, 1X/DAY (PRN-AS NEEDED)
     Route: 065
     Dates: start: 20200824
  10. ETOPOSIDE [Suspect]
     Active Substance: ETOPOSIDE
     Indication: Germ cell neoplasm
     Dosage: 360 MG, 2X/DAY
     Route: 050
     Dates: start: 20200824, end: 20200824
  11. METFORMIN [Suspect]
     Active Substance: METFORMIN HYDROCHLORIDE
     Indication: Diabetes mellitus
     Dosage: 500 MG, 1X/DAY
     Route: 065
     Dates: start: 20200824
  12. ONDANSETRON [Suspect]
     Active Substance: ONDANSETRON
     Indication: Supportive care
     Dosage: 16 MG, 1X/DAY (BD FOR 3 DAYS)
     Route: 065
     Dates: start: 20200824, end: 20200826

REACTIONS (1)
  - Anaphylactic reaction [Recovered/Resolved]

NARRATIVE: CASE EVENT DATE: 20200824
